FAERS Safety Report 4607713-7 (Version None)
Quarter: 2005Q1

REPORT INFORMATION
  Report Type: 
  Country: None (occurrence: None)
  Receive Date: 20050309
  Receipt Date: 20050224
  Transmission Date: 20050727
  Serious: Yes (Death, Hospitalization, Other)
  Sender: FDA-Public Use
  Company Number: 062-20785-04050285

PATIENT
  Age: 70 Year
  Sex: Male

DRUGS (6)
  1. THALIDOMIDE -PHARMION (THALIDOMIDE)(50 MILLIGRAM, CAPSULES) [Suspect]
     Indication: MULTIPLE MYELOMA
     Dosage: SEE IMAGE
     Route: 048
     Dates: start: 20030701, end: 20040515
  2. THALIDOMIDE -PHARMION (THALIDOMIDE)(50 MILLIGRAM, CAPSULES) [Suspect]
     Indication: MULTIPLE MYELOMA
     Dosage: SEE IMAGE
     Route: 048
     Dates: start: 20040601, end: 20040701
  3. DIOVAN [Concomitant]
  4. ALLOPURINOL [Concomitant]
  5. METOPROLOL TARTRATE [Concomitant]
  6. AQUAPHOR (XIPAMIDE) [Concomitant]

REACTIONS (14)
  - CARDIAC FAILURE CONGESTIVE [None]
  - DEHYDRATION [None]
  - DEPRESSED LEVEL OF CONSCIOUSNESS [None]
  - GENERAL PHYSICAL HEALTH DETERIORATION [None]
  - HYPERKALAEMIA [None]
  - LUNG INFILTRATION [None]
  - METASTASES TO LUNG [None]
  - PLEURAL EFFUSION [None]
  - PNEUMONIA [None]
  - PULMONARY CONGESTION [None]
  - RALES [None]
  - RENAL CELL CARCINOMA STAGE UNSPECIFIED [None]
  - RENAL FAILURE [None]
  - RESPIRATORY FAILURE [None]
